FAERS Safety Report 5973385-2 (Version None)
Quarter: 2008Q4

REPORT INFORMATION
  Report Type: 
  Country: None (occurrence: None)
  Receive Date: 20081201
  Receipt Date: 20080402
  Transmission Date: 20090506
  Serious: Yes (Other)
  Sender: FDA-Public Use
  Company Number: US-AMGEN-KDL262849

PATIENT
  Sex: Female
  Weight: 114.4 kg

DRUGS (5)
  1. ENBREL [Suspect]
     Indication: RHEUMATOID ARTHRITIS
     Route: 058
     Dates: start: 20071207
  2. PLAQUENIL [Concomitant]
     Dates: start: 20020101
  3. METHOTREXATE [Concomitant]
     Route: 048
     Dates: start: 20020101
  4. FOLIC ACID [Concomitant]
  5. TYLENOL (CAPLET) [Concomitant]

REACTIONS (6)
  - ANTICIPATORY ANXIETY [None]
  - ARTHRALGIA [None]
  - BLOOD GLUCOSE DECREASED [None]
  - DEPRESSION [None]
  - JOINT EFFUSION [None]
  - OVARIAN CYST [None]
